FAERS Safety Report 8485637-5 (Version None)
Quarter: 2012Q3

REPORT INFORMATION
  Report Type: 
  Country: None (occurrence: None)
  Receive Date: 20120703
  Receipt Date: 20120702
  Transmission Date: 20120928
  Serious: No
  Sender: FDA-Public Use
  Company Number: US-BAYER-2012-065443

PATIENT
  Age: 35 Year
  Sex: Female

DRUGS (1)
  1. MAGNEVIST [Suspect]
     Indication: NUCLEAR MAGNETIC RESONANCE IMAGING
     Dosage: 20 ML, ONCE
     Dates: start: 20120629, end: 20120629

REACTIONS (3)
  - THROAT IRRITATION [None]
  - PARANASAL SINUS HYPERSECRETION [None]
  - RASH MACULAR [None]
